FAERS Safety Report 16299507 (Version 1)
Quarter: 2019Q2

REPORT INFORMATION
  Report Type: Spontaneous
  Country: IL (occurrence: IL)
  Receive Date: 20190510
  Receipt Date: 20190510
  Transmission Date: 20190711
  Serious: Yes (Hospitalization)
  Sender: FDA-Public Use
  Company Number: IL-ACTELION-A-CH2019-190186

PATIENT
  Age: 81 Year
  Sex: Female

DRUGS (15)
  1. CADEX [Concomitant]
  2. ELTROXIN [Concomitant]
     Active Substance: LEVOTHYROXINE
  3. OPSUMIT [Suspect]
     Active Substance: MACITENTAN
     Indication: PULMONARY ARTERIAL HYPERTENSION
     Dosage: 10 MG, QD
     Route: 048
     Dates: start: 20190411
  4. LIPITOR [Concomitant]
     Active Substance: ATORVASTATIN CALCIUM
  5. MIRO [Concomitant]
  6. MONOCORD [Concomitant]
     Active Substance: ISOSORBIDE MONONITRATE
  7. TRAJENTA [Concomitant]
     Active Substance: LINAGLIPTIN
  8. PAXXET [Concomitant]
     Active Substance: PAROXETINE HYDROCHLORIDE
  9. DOPICAR [Concomitant]
     Active Substance: CARBIDOPA\LEVODOPA
  10. RELVAR [Concomitant]
     Active Substance: FLUTICASONE FUROATE\VILANTEROL TRIFENATATE
  11. ELIQUIS [Concomitant]
     Active Substance: APIXABAN
  12. OMEPRADEX [Concomitant]
     Active Substance: OMEPRAZOLE
  13. VASODIP [Concomitant]
     Active Substance: LERCANIDIPINE HYDROCHLORIDE
  14. LETROZOLE. [Concomitant]
     Active Substance: LETROZOLE
  15. NORMOPRESAN [Concomitant]

REACTIONS (6)
  - Hyperkalaemia [Recovering/Resolving]
  - Diarrhoea [Recovered/Resolved]
  - Blood creatinine increased [Recovering/Resolving]
  - Transfusion [Unknown]
  - Vomiting [Recovered/Resolved]
  - Haemoglobin decreased [Recovering/Resolving]

NARRATIVE: CASE EVENT DATE: 20190423
